FAERS Safety Report 7530371-9 (Version None)
Quarter: 2011Q2

REPORT INFORMATION
  Report Type: 
  Country: None (occurrence: None)
  Receive Date: 20110607
  Receipt Date: 20110526
  Transmission Date: 20111010
  Serious: Yes (Hospitalization)
  Sender: FDA-Public Use
  Company Number: US-ELI_LILLY_AND_COMPANY-US201106000176

PATIENT
  Sex: Male

DRUGS (2)
  1. ZYPREXA [Suspect]
     Dosage: 20 MG, UNKNOWN
     Route: 048
  2. ZYPREXA RELPREVV [Suspect]
     Dosage: UNK, UNKNOWN
     Route: 030

REACTIONS (2)
  - HALLUCINATION, AUDITORY [None]
  - DRUG EFFECT DECREASED [None]
